FAERS Safety Report 5854522-7 (Version None)
Quarter: 2008Q3

REPORT INFORMATION
  Report Type: 
  Country: None (occurrence: None)
  Receive Date: 20080822
  Receipt Date: 20070904
  Transmission Date: 20090109
  Serious: No
  Sender: FDA-Public Use
  Company Number: US-ABBOTT-07P-163-0416306-00

PATIENT
  Age: 52 Year
  Sex: Female
  Weight: 59.02 kg

DRUGS (3)
  1. SYNTHROID [Suspect]
     Indication: HYPOTHYROIDISM
     Route: 048
     Dates: start: 20070811, end: 20070902
  2. SYNTHROID [Suspect]
     Indication: AUTOIMMUNE THYROIDITIS
  3. CYANOCOBALAMIN-TANNIN COMPLEX [Concomitant]
     Indication: AUTOIMMUNE THYROIDITIS
     Route: 050

REACTIONS (2)
  - DIZZINESS [None]
  - DYSPNOEA [None]
